FAERS Safety Report 25086606 (Version 2)
Quarter: 2025Q2

REPORT INFORMATION
  Report Type: Report from Study
  Country: US (occurrence: US)
  Receive Date: 20250317
  Receipt Date: 20250403
  Transmission Date: 20250717
  Serious: Yes (Other)
  Sender: ABBVIE
  Company Number: US-ABBVIE-6177002

PATIENT
  Age: 67 Year
  Sex: Female
  Weight: 79.378 kg

DRUGS (1)
  1. RINVOQ [Suspect]
     Active Substance: UPADACITINIB
     Indication: Ankylosing spondylitis
     Dosage: FORM STRENGTH: 15 MILLIGRAM
     Route: 048
     Dates: start: 20241125

REACTIONS (9)
  - Trigger finger [Not Recovered/Not Resolved]
  - Pain in extremity [Recovered/Resolved]
  - Eye inflammation [Recovered/Resolved]
  - Ankylosing spondylitis [Unknown]
  - Musculoskeletal stiffness [Recovered/Resolved]
  - Inflammation [Unknown]
  - Dry eye [Recovered/Resolved]
  - Gastrointestinal inflammation [Recovered/Resolved]
  - Therapeutic product effect incomplete [Recovered/Resolved]

NARRATIVE: CASE EVENT DATE: 20250201
